APPROVED DRUG PRODUCT: WELLCOVORIN
Active Ingredient: LEUCOVORIN CALCIUM
Strength: EQ 5MG BASE/ML (EQ 5MG BASE/ML)
Dosage Form/Route: SOLUTION;INTRAMUSCULAR, INTRAVENOUS
Application: A087439 | Product #001
Applicant: GLAXOSMITHKLINE
Approved: Oct 19, 1982 | RLD: No | RS: No | Type: DISCN